FAERS Safety Report 6572797-6 (Version None)
Quarter: 2010Q1

REPORT INFORMATION
  Report Type: 
  Country: None (occurrence: None)
  Receive Date: 20100205
  Receipt Date: 20100128
  Transmission Date: 20100710
  Serious: Yes (Death)
  Sender: FDA-Public Use
  Company Number: JP-ABBOTT-10P-087-0624436-00

PATIENT
  Age: 77 Year
  Sex: Male

DRUGS (10)
  1. LEUPLIN SR FOR INJECTION 11.25 MG [Suspect]
     Indication: PROSTATE CANCER STAGE IV
     Route: 058
     Dates: start: 20060620, end: 20070626
  2. BICALUTAMIDE [Concomitant]
     Indication: PROSTATE CANCER STAGE IV
     Route: 048
     Dates: start: 20060606, end: 20061204
  3. FLUTAMIDE [Concomitant]
     Indication: PROSTATE CANCER STAGE IV
     Route: 048
     Dates: start: 20061205, end: 20070219
  4. DECADRON [Concomitant]
     Indication: PROSTATE CANCER STAGE IV
     Route: 048
     Dates: start: 20070220, end: 20071023
  5. ESTRACYT [Concomitant]
     Indication: PROSTATE CANCER STAGE IV
     Route: 048
     Dates: start: 20070404, end: 20070716
  6. ZOMETA [Concomitant]
     Indication: PROSTATE CANCER STAGE IV
     Route: 041
     Dates: start: 20070424, end: 20071002
  7. NAFTOPIDIL [Concomitant]
     Indication: BENIGN PROSTATIC HYPERPLASIA
     Route: 048
     Dates: start: 20060620, end: 20070219
  8. NAFTOPIDIL [Concomitant]
     Route: 048
     Dates: start: 20070220, end: 20070920
  9. OXYCONTIN [Concomitant]
     Indication: CANCER PAIN
     Dosage: 10-30MG
     Route: 048
     Dates: start: 20070404, end: 20070928
  10. NOVAMIN [Concomitant]
     Indication: PROPHYLAXIS OF NAUSEA AND VOMITING
     Route: 048
     Dates: start: 20070404, end: 20070928

REACTIONS (1)
  - PROSTATE CANCER [None]
